FAERS Safety Report 8156837-9 (Version None)
Quarter: 2012Q1

REPORT INFORMATION
  Report Type: 
  Country: None (occurrence: None)
  Receive Date: 20120222
  Receipt Date: 20120217
  Transmission Date: 20120608
  Serious: Yes (Hospitalization)
  Sender: FDA-Public Use
  Company Number: US-GLAXOSMITHKLINE-A0953932A

PATIENT
  Sex: Female
  Weight: 59.4 kg

DRUGS (19)
  1. MEGACE [Suspect]
     Route: 048
  2. COLACE [Suspect]
     Dosage: 100MG TWICE PER DAY
  3. ACETAMINOPHEN [Concomitant]
  4. ASPIRIN [Concomitant]
  5. CITRATE OF MAGNESIA [Concomitant]
     Route: 048
  6. ZOFRAN [Suspect]
     Route: 048
     Dates: end: 20090828
  7. SUNITINIB MALATE [Suspect]
     Dosage: 50MG PER DAY
     Dates: end: 20090828
  8. FERROUS GLUCONATE [Suspect]
     Indication: IRON DEFICIENCY
     Dosage: 325MG TWICE PER DAY
     Route: 048
     Dates: end: 20090828
  9. CARVEDILOL [Concomitant]
     Dosage: 50MG PER DAY
  10. TESSALON [Concomitant]
     Dosage: 100MG THREE TIMES PER DAY
  11. RADIATION [Suspect]
     Dates: start: 20090408
  12. PIOGLITAZONE [Suspect]
     Dosage: 30MG PER DAY
  13. ACTONEL [Concomitant]
  14. CIPRO [Concomitant]
  15. LORTAB [Suspect]
  16. SIMVASTATIN [Suspect]
     Dosage: 40MG TWICE PER DAY
     Route: 048
     Dates: end: 20090828
  17. AMLODIPINE [Concomitant]
  18. INVESTIGATIONAL DRUG [Suspect]
  19. RANITIDINE [Suspect]
     Dosage: 150MG TWICE PER DAY
     Dates: end: 20090828

REACTIONS (6)
  - COGNITIVE DISORDER [None]
  - FATIGUE [None]
  - MALAISE [None]
  - HEADACHE [None]
  - VOMITING [None]
  - ABDOMINAL PAIN [None]
